FAERS Safety Report 4927804-0 (Version None)
Quarter: 2006Q1

REPORT INFORMATION
  Report Type: 
  Country: None (occurrence: None)
  Receive Date: 20060228
  Receipt Date: 20060202
  Transmission Date: 20060701
  Serious: Yes (Other)
  Sender: FDA-Public Use
  Company Number: PHBS2006JP01970

PATIENT
  Age: 5 Year
  Sex: Female

DRUGS (1)
  1. TEGRETOL [Suspect]
     Dosage: 50% 1 G/DAY
     Route: 065
     Dates: start: 20020201, end: 20020301

REACTIONS (2)
  - DRUG HYPERSENSITIVITY [None]
  - HYPOTHYROIDISM [None]
